FAERS Safety Report 5623278-5 (Version None)
Quarter: 2008Q1

REPORT INFORMATION
  Report Type: 
  Country: None (occurrence: None)
  Receive Date: 20080212
  Receipt Date: 20080207
  Transmission Date: 20080703
  Serious: Yes (Hospitalization)
  Sender: FDA-Public Use
  Company Number: JP-JNJFOC-20080107033

PATIENT
  Sex: Male

DRUGS (5)
  1. FINIBAX [Suspect]
     Indication: DRUG USE FOR UNKNOWN INDICATION
     Route: 041
  2. AVELOX [Suspect]
     Indication: SINUSITIS
     Route: 048
  3. RULID [Concomitant]
     Indication: SINUSITIS
     Route: 048
  4. ALLEGRA [Concomitant]
     Indication: DRUG USE FOR UNKNOWN INDICATION
     Route: 048
  5. GENINAX [Concomitant]
     Indication: SINUSITIS
     Route: 048

REACTIONS (1)
  - STEVENS-JOHNSON SYNDROME [None]
